FAERS Safety Report 5273693-7 (Version None)
Quarter: 2007Q1

REPORT INFORMATION
  Report Type: 
  Country: None (occurrence: None)
  Receive Date: 20070321
  Receipt Date: 20070321
  Transmission Date: 20070707
  Serious: Yes (Life-Threatening)
  Sender: FDA-Public Use
  Company Number: None

PATIENT
  Age: 70 Year
  Sex: Male
  Weight: 75.7507 kg

DRUGS (4)
  1. LITHIUM CARBONATE [Suspect]
     Dosage: PO 2-300MG CAPS  ONCE EVERY EVENING; ON 600 MG EVERY EVENING FOR 4-5 YEARS
     Route: 048
  2. SIMVASTATIN [Concomitant]
  3. CENTRUM SILVER [Concomitant]
  4. ASPIRIN [Concomitant]

REACTIONS (4)
  - CHEST PAIN [None]
  - HEADACHE [None]
  - PARAESTHESIA [None]
  - PHARMACEUTICAL PRODUCT COMPLAINT [None]
